FAERS Safety Report 4984221-5 (Version None)
Quarter: 2006Q2

REPORT INFORMATION
  Report Type: 
  Country: None (occurrence: None)
  Receive Date: 20060427
  Receipt Date: 20060418
  Transmission Date: 20061013
  Serious: Yes (Life-Threatening)
  Sender: FDA-Public Use
  Company Number: JP-AVENTIS-200611275JP

PATIENT
  Age: 92 Year
  Sex: Male

DRUGS (5)
  1. LASIX [Suspect]
     Route: 041
  2. GRAMALIL [Concomitant]
  3. GRAMALIL [Concomitant]
  4. SEROQUEL [Concomitant]
  5. ROHYPNOL [Concomitant]

REACTIONS (2)
  - PRODUCTIVE COUGH [None]
  - RESPIRATORY ARREST [None]
